FAERS Safety Report 6302814-X (Version None)
Quarter: 2009Q3

REPORT INFORMATION
  Report Type: 
  Country: None (occurrence: None)
  Receive Date: 20090810
  Receipt Date: 20090806
  Transmission Date: 20100115
  Serious: Yes (Hospitalization)
  Sender: FDA-Public Use
  Company Number: US-BRISTOL-MYERS SQUIBB COMPANY-14722433

PATIENT
  Age: 57 Year
  Sex: Male

DRUGS (4)
  1. ABILIFY [Suspect]
     Indication: BIPOLAR DISORDER
     Dosage: STARTED WITH 5MG INCREASED TO 20MG AND DECREASE TO 10MG
     Route: 048
     Dates: start: 20081125
  2. ABILIFY [Suspect]
     Indication: MANIA
     Dosage: STARTED WITH 5MG INCREASED TO 20MG AND DECREASE TO 10MG
     Route: 048
     Dates: start: 20081125
  3. DEPAKOTE [Concomitant]
  4. LAMICTAL [Concomitant]

REACTIONS (2)
  - DELUSION [None]
  - DEPRESSION [None]
